FAERS Safety Report 22607973 (Version 1)
Quarter: 2023Q2

REPORT INFORMATION
  Report Type: Spontaneous
  Country: US (occurrence: US)
  Receive Date: 20230616
  Receipt Date: 20230616
  Transmission Date: 20230722
  Serious: No
  Sender: FDA-Public Use
  Company Number: US-BIOGEN-2022BI01170378

PATIENT
  Age: 56 Year
  Sex: Male

DRUGS (2)
  1. TECFIDERA [Suspect]
     Active Substance: DIMETHYL FUMARATE
     Indication: Multiple sclerosis
     Route: 050
  2. IBUPROFEN [Suspect]
     Active Substance: IBUPROFEN
     Indication: Flushing
     Route: 050

REACTIONS (7)
  - Renal disorder [Unknown]
  - Liver disorder [Unknown]
  - Vertigo [Unknown]
  - Dehydration [Unknown]
  - Pruritus [Unknown]
  - Flushing [Recovered/Resolved]
  - Urticaria [Recovered/Resolved]

NARRATIVE: CASE EVENT DATE: 20230501
